FAERS Safety Report 18342541 (Version 3)
Quarter: 2021Q3

REPORT INFORMATION
  Report Type: Report from Study
  Country: US (occurrence: US)
  Receive Date: 20201005
  Receipt Date: 20210701
  Transmission Date: 20211014
  Serious: Yes (Hospitalization, Other)
  Sender: FDA-Public Use
  Company Number: US-ACADIA PHARMACEUTICALS INC.-ACA-2020-PIM-003128

PATIENT
  Age: 75 Year
  Sex: Female

DRUGS (8)
  1. ROPINIROLE. [Concomitant]
     Active Substance: ROPINIROLE
  2. SERTRALINE [Concomitant]
     Active Substance: SERTRALINE HYDROCHLORIDE
  3. SINEMET [Concomitant]
     Active Substance: CARBIDOPA\LEVODOPA
  4. DONEPEZIL. [Concomitant]
     Active Substance: DONEPEZIL
  5. NUPLAZID [Suspect]
     Active Substance: PIMAVANSERIN TARTRATE
     Indication: HALLUCINATION
  6. NUPLAZID [Suspect]
     Active Substance: PIMAVANSERIN TARTRATE
     Indication: DELUSION
  7. NUPLAZID [Suspect]
     Active Substance: PIMAVANSERIN TARTRATE
     Indication: PARKINSON^S DISEASE PSYCHOSIS
     Dosage: 34 MILLIGRAM, QD
     Route: 048
     Dates: start: 20200910
  8. ENTACAPONE. [Concomitant]
     Active Substance: ENTACAPONE

REACTIONS (6)
  - Pharyngitis [Unknown]
  - Urinary tract infection [Unknown]
  - Myocardial infarction [Recovered/Resolved]
  - Hallucination, visual [Recovering/Resolving]
  - Mouth swelling [Unknown]
  - Hallucination [Recovering/Resolving]

NARRATIVE: CASE EVENT DATE: 20210411
